FAERS Safety Report 23550074 (Version 1)
Quarter: 2024Q1

REPORT INFORMATION
  Report Type: Spontaneous
  Country: US (occurrence: US)
  Receive Date: 20240221
  Receipt Date: 20240221
  Transmission Date: 20240410
  Serious: Yes (Death, Other)
  Sender: FDA-Public Use
  Company Number: US-AMNEAL PHARMACEUTICALS-2024-AMRX-00509

PATIENT
  Sex: Female

DRUGS (3)
  1. RYTARY [Suspect]
     Active Substance: CARBIDOPA\LEVODOPA
     Indication: Parkinson^s disease
     Dosage: 4 CAPSULES, 4 /DAY (100 MG)
     Route: 048
  2. RYTARY [Suspect]
     Active Substance: CARBIDOPA\LEVODOPA
     Dosage: 1 CAPSULES, 4 /DAY (100 MG)
     Route: 048
  3. CARBIDOPA\LEVODOPA [Concomitant]
     Active Substance: CARBIDOPA\LEVODOPA
     Indication: Parkinson^s disease
     Dosage: UNK
     Route: 065

REACTIONS (11)
  - Dysphagia [Fatal]
  - Throat tightness [Fatal]
  - Cachexia [Fatal]
  - Dehydration [Fatal]
  - Cognitive disorder [Recovered/Resolved]
  - Drooling [Unknown]
  - Incoherent [Recovered/Resolved]
  - Stupor [Recovered/Resolved]
  - Weight decreased [Unknown]
  - Overdose [Unknown]
  - Product use complaint [Unknown]
